FAERS Safety Report 17395301 (Version 3)
Quarter: 2021Q1

REPORT INFORMATION
  Report Type: Report from Study
  Country: US (occurrence: US)
  Receive Date: 20200210
  Receipt Date: 20210221
  Transmission Date: 20210419
  Serious: No
  Sender: FDA-Public Use
  Company Number: US-HTU-2019US018472

PATIENT
  Sex: Male

DRUGS (9)
  1. VITAMIN E                          /00110501/ [Concomitant]
     Active Substance: TOCOPHEROL
  2. VITAMIN C [Concomitant]
     Active Substance: ASCORBIC ACID
  3. TURMERIC                           /01079601/ [Concomitant]
     Active Substance: HERBALS\TURMERIC
  4. MULTIVITAMINS                      /07504101/ [Concomitant]
     Active Substance: VITAMINS
  5. VALCHLOR [Suspect]
     Active Substance: MECHLORETHAMINE
     Indication: CUTANEOUS T-CELL LYMPHOMA
     Dosage: THIN FILM, SINGLE
     Route: 061
     Dates: start: 20181218
  6. PROBIOTIC 10 [Concomitant]
     Active Substance: DIETARY SUPPLEMENT\PROBIOTICS
  7. RED YEAST RICE [Concomitant]
     Active Substance: DIETARY SUPPLEMENT
  8. VITAMIN D                          /00318501/ [Concomitant]
     Active Substance: CHOLECALCIFEROL
  9. COENZYME Q10 [Concomitant]
     Active Substance: DIETARY SUPPLEMENT\UBIDECARENONE

REACTIONS (8)
  - Skin discolouration [Recovering/Resolving]
  - Urticaria [Not Recovered/Not Resolved]
  - Off label use [Unknown]
  - Drug ineffective [Unknown]
  - Product storage error [Unknown]
  - Rash papular [Not Recovered/Not Resolved]
  - Application site pruritus [Recovering/Resolving]
  - Erythema [Recovering/Resolving]
